FAERS Safety Report 13141823 (Version 1)
Quarter: 2017Q1

REPORT INFORMATION
  Report Type: Spontaneous
  Country: US (occurrence: US)
  Receive Date: 20170123
  Receipt Date: 20170123
  Transmission Date: 20170428
  Serious: Yes (Hospitalization)
  Sender: FDA-Public Use
  Company Number: None

PATIENT
  Age: 64 Year
  Sex: Female
  Weight: 59.3 kg

DRUGS (1)
  1. REGORAFENIB [Suspect]
     Active Substance: REGORAFENIB
     Indication: GALLBLADDER ADENOCARCINOMA
     Dosage: ?          OTHER FREQUENCY:PO QD Q3 WEEKS;?
     Route: 048
     Dates: start: 20161229, end: 20170120

REACTIONS (3)
  - Pain [None]
  - Hepatic enzyme increased [None]
  - Pancreatitis [None]

NARRATIVE: CASE EVENT DATE: 20170122
